FAERS Safety Report 6345179-X (Version None)
Quarter: 2009Q3

REPORT INFORMATION
  Report Type: 
  Country: None (occurrence: None)
  Receive Date: 20090909
  Receipt Date: 20090831
  Transmission Date: 20100115
  Serious: Yes (Hospitalization, Other)
  Sender: FDA-Public Use
  Company Number: GB-JNJFOC-20090900007

PATIENT
  Age: 4 Year
  Sex: Male

DRUGS (8)
  1. HALOPERIDOL [Suspect]
     Indication: SYDENHAM'S CHOREA
     Route: 065
  2. CARBAMAZEPINE [Suspect]
     Indication: SYDENHAM'S CHOREA
     Route: 065
  3. CLOBAZAM [Suspect]
     Indication: SYDENHAM'S CHOREA
     Route: 065
  4. ANTICHOLINERGICS [Concomitant]
     Route: 065
  5. DIPHENHYDRAMINE HCL [Concomitant]
     Route: 065
  6. METHYLPREDNISOLONE [Concomitant]
     Route: 065
  7. DIAZEPAM [Concomitant]
     Route: 065
  8. VALPROATE SODIUM [Concomitant]
     Route: 065

REACTIONS (9)
  - AKINESIA [None]
  - APHASIA [None]
  - CRYING [None]
  - DRUG INEFFECTIVE [None]
  - DYSKINESIA [None]
  - DYSTONIA [None]
  - GENERAL PHYSICAL HEALTH DETERIORATION [None]
  - MASKED FACIES [None]
  - OCULOGYRIC CRISIS [None]
